FAERS Safety Report 21647768 (Version 1)
Quarter: 2022Q4

REPORT INFORMATION
  Report Type: Spontaneous
  Country: CN (occurrence: None)
  Receive Date: 20221128
  Receipt Date: 20221128
  Transmission Date: 20230113
  Serious: Yes (Other)
  Sender: FDA-Public Use
  Company Number: CN-ROCHE-3225718

PATIENT
  Age: 33 Year
  Sex: Female

DRUGS (11)
  1. TRASTUZUMAB [Suspect]
     Active Substance: TRASTUZUMAB
     Indication: Breast cancer
     Dosage: TCBHP REGIMEN FIRST DOSE,D1, 3 WEEKS AS A CYCLE
     Route: 065
  2. TRASTUZUMAB [Suspect]
     Active Substance: TRASTUZUMAB
     Dosage: TCBHP REGIMEN MAINTENANCE DOSE,D1, 3 WEEKS AS A CYCLE
     Route: 065
     Dates: start: 20220919
  3. TRASTUZUMAB [Suspect]
     Active Substance: TRASTUZUMAB
     Dosage: THP REGIMEN, D1, 3 WEEKS AS A CYCLE
     Route: 065
     Dates: start: 20221021
  4. PERTUZUMAB [Suspect]
     Active Substance: PERTUZUMAB
     Indication: Breast cancer
     Dosage: TCBHP REGIMEN FIRST DOSE,D1, 3 WEEKS AS A CYCLE
     Route: 065
  5. PERTUZUMAB [Suspect]
     Active Substance: PERTUZUMAB
     Dosage: TCBHP REGIMEN MAINTENANCE DOSE,D1, 3 WEEKS AS A CYCLE
     Route: 065
     Dates: start: 20220919
  6. PERTUZUMAB [Suspect]
     Active Substance: PERTUZUMAB
     Dosage: THP REGIMEN MAINTENANCE DOSE,D1, 3 WEEKS AS A CYCLE
     Route: 065
     Dates: start: 20221021
  7. PACLITAXEL [Concomitant]
     Active Substance: PACLITAXEL
     Indication: Breast cancer
     Dosage: TCBHP REGIMEN, D2, 3 WEEKS AS A CYCLE, THE FIRST CYCLE AND THE SECOND CYCLE
     Route: 065
  8. PACLITAXEL [Concomitant]
     Active Substance: PACLITAXEL
     Dosage: TCBHP REGIMEN, D2, THE THIRD CYCLE, 3 WEEKS AS A CYCLE
     Route: 065
     Dates: start: 20220919
  9. PACLITAXEL [Concomitant]
     Active Substance: PACLITAXEL
     Dosage: THP REGIMEN, D2, 3 WEEKS AS A CYCLE
     Route: 065
     Dates: start: 20221021
  10. CARBOPLATIN [Concomitant]
     Active Substance: CARBOPLATIN
     Indication: Breast cancer
     Dosage: TCBHP REGIMEN,D2, 3 WEEKS AS A CYCLE
     Route: 065
  11. CARBOPLATIN [Concomitant]
     Active Substance: CARBOPLATIN
     Dosage: TCBHP REGIMEN,D2, 3 WEEKS AS A CYCLE
     Route: 065

REACTIONS (1)
  - Myelosuppression [Not Recovered/Not Resolved]
